FAERS Safety Report 6907873-9 (Version None)
Quarter: 2010Q3

REPORT INFORMATION
  Report Type: 
  Country: None (occurrence: None)
  Receive Date: 20100805
  Receipt Date: 20100727
  Transmission Date: 20110219
  Serious: Yes (Hospitalization)
  Sender: FDA-Public Use
  Company Number: US-ASTRAZENECA-2009SE18060

PATIENT
  Sex: Female
  Weight: 104.3 kg

DRUGS (19)
  1. SYMBICORT [Suspect]
     Indication: CHRONIC OBSTRUCTIVE PULMONARY DISEASE
     Dosage: 160 MCGS
     Route: 055
     Dates: start: 20070101
  2. BLOOD PRESSURE MEDICATION [Concomitant]
  3. KLOZIPAM [Concomitant]
  4. CENTRUM SILVER [Concomitant]
  5. GLUCOPHAGE [Concomitant]
  6. PAXIL [Concomitant]
  7. PROTONIX [Concomitant]
  8. LEVOTHYROXINE [Concomitant]
  9. AMIODARONE HCL [Concomitant]
  10. FOLIC ACID [Concomitant]
  11. FLONASE [Concomitant]
  12. HYDROCODONE BITARTRATE [Concomitant]
  13. LISINOPRIL [Concomitant]
  14. SPIRONOLACTONE [Concomitant]
  15. LYRICA [Concomitant]
  16. MELATONIN [Concomitant]
  17. AMBIEN [Concomitant]
  18. CLONIDINE [Concomitant]
  19. ALBUTEROL [Concomitant]

REACTIONS (8)
  - CARDIAC OPERATION [None]
  - CEREBROVASCULAR ACCIDENT [None]
  - DRUG ADMINISTRATION ERROR [None]
  - FATIGUE [None]
  - KNEE ARTHROPLASTY [None]
  - MYOCARDIAL INFARCTION [None]
  - PNEUMONIA [None]
  - SLEEP APNOEA SYNDROME [None]
